FAERS Safety Report 6634363-3 (Version None)
Quarter: 2010Q1

REPORT INFORMATION
  Report Type: 
  Country: None (occurrence: None)
  Receive Date: 20100315
  Receipt Date: 20100311
  Transmission Date: 20100710
  Serious: Yes (Hospitalization)
  Sender: FDA-Public Use
  Company Number: FR-SANOFI-AVENTIS-2010SA014071

PATIENT
  Age: 89 Year
  Sex: Female

DRUGS (14)
  1. KARDEGIC [Suspect]
     Indication: DRUG USE FOR UNKNOWN INDICATION
     Route: 048
     Dates: end: 20100217
  2. LANTUS [Suspect]
     Route: 065
  3. DILTIAZEM HCL [Suspect]
     Indication: DRUG USE FOR UNKNOWN INDICATION
     Route: 048
     Dates: start: 20100209, end: 20100217
  4. LASILIX [Suspect]
     Indication: DRUG USE FOR UNKNOWN INDICATION
     Route: 048
     Dates: start: 20100209, end: 20100217
  5. TRIATEC [Suspect]
     Indication: DRUG USE FOR UNKNOWN INDICATION
     Route: 048
     Dates: start: 20100209, end: 20100217
  6. INIPOMP [Suspect]
     Indication: DRUG USE FOR UNKNOWN INDICATION
     Route: 048
     Dates: end: 20100217
  7. EFFEXOR [Suspect]
     Indication: DRUG USE FOR UNKNOWN INDICATION
     Route: 048
     Dates: end: 20100217
  8. DAFALGAN [Suspect]
     Indication: DRUG USE FOR UNKNOWN INDICATION
     Route: 048
     Dates: end: 20100217
  9. ALPRAZOLAM [Suspect]
     Indication: DRUG USE FOR UNKNOWN INDICATION
     Route: 048
     Dates: end: 20100217
  10. DUPHALAC /NET/ [Suspect]
     Indication: DRUG USE FOR UNKNOWN INDICATION
     Route: 048
  11. CELLUVISC [Suspect]
     Indication: DRUG USE FOR UNKNOWN INDICATION
     Route: 047
  12. XALATAN [Suspect]
     Indication: DRUG USE FOR UNKNOWN INDICATION
     Route: 047
  13. DIAMOX SRC [Concomitant]
     Indication: DRUG USE FOR UNKNOWN INDICATION
     Route: 065
     Dates: end: 20100209
  14. ADANCOR [Concomitant]
     Indication: DRUG USE FOR UNKNOWN INDICATION
     Route: 065
     Dates: end: 20100209

REACTIONS (2)
  - PRURITUS GENERALISED [None]
  - THROMBOCYTOPENIA [None]
